FAERS Safety Report 7867790-7 (Version None)
Quarter: 2011Q4

REPORT INFORMATION
  Report Type: 
  Country: None (occurrence: None)
  Receive Date: 20111028
  Receipt Date: 20111025
  Transmission Date: 20120403
  Serious: Yes (Life-Threatening, Hospitalization)
  Sender: FDA-Public Use
  Company Number: IT-BRISTOL-MYERS SQUIBB COMPANY-16196339

PATIENT
  Age: 12 Year
  Sex: Female

DRUGS (1)
  1. SPRYCEL [Suspect]
     Indication: CHRONIC MYELOID LEUKAEMIA
     Dosage: RECEIVED TO 12SEP2011
     Dates: start: 20090713

REACTIONS (5)
  - HYPERTENSION [None]
  - FLUID RETENTION [None]
  - PROTEINURIA [None]
  - MICROALBUMINURIA [None]
  - CONVULSION [None]
